FAERS Safety Report 8487397-0 (Version None)
Quarter: 2012Q2

REPORT INFORMATION
  Report Type: 
  Country: None (occurrence: None)
  Receive Date: 20120628
  Receipt Date: 20120628
  Transmission Date: 20120825
  Serious: No
  Sender: FDA-Public Use
  Company Number: None

PATIENT
  Age: 70 Year
  Sex: Male
  Weight: 66.3 kg

DRUGS (2)
  1. ROSUVASTATIN [Suspect]
     Dosage: 40 MG EVERY DAY PO
     Route: 048
     Dates: start: 20091201
  2. WARFARIN SODIUM [Suspect]
     Dosage: 5 MG EVERY DAY PO
     Route: 048
     Dates: start: 20120614, end: 20120620

REACTIONS (2)
  - GASTRIC HAEMORRHAGE [None]
  - HAEMORRHAGE [None]
